FAERS Safety Report 8170943-4 (Version None)
Quarter: 2012Q1

REPORT INFORMATION
  Report Type: 
  Country: None (occurrence: None)
  Receive Date: 20120113
  Receipt Date: 20110824
  Transmission Date: 20120608
  Serious: No
  Sender: FDA-Public Use
  Company Number: FK201101822

PATIENT
  Sex: Female

DRUGS (1)
  1. PACLITAXEL [Suspect]
     Dosage: INTRAVENOUS (NOT OTHERWISE SPECIFIED)
     Route: 042

REACTIONS (3)
  - HYPERSENSITIVITY [None]
  - URTICARIA [None]
  - HYPERTENSION [None]
